FAERS Safety Report 9914574 (Version 8)
Quarter: 2015Q2

REPORT INFORMATION
  Report Type: Spontaneous
  Country: US (occurrence: US)
  Receive Date: 20140220
  Receipt Date: 20150511
  Transmission Date: 20150821
  Serious: Yes (Hospitalization, Disabling, Other)
  Sender: FDA-Public Use
  Company Number: US-009507513-1203USA02922

PATIENT
  Sex: Female
  Weight: 62 kg

DRUGS (4)
  1. FOSAMAX [Suspect]
     Active Substance: ALENDRONATE SODIUM
     Dosage: 70 MG, QW
     Route: 048
     Dates: end: 2008
  2. FOSAMAX PLUS D [Suspect]
     Active Substance: ALENDRONATE SODIUM\CHOLECALCIFEROL
     Indication: OSTEOPOROSIS
     Route: 048
  3. CITRACAL + D [Concomitant]
     Active Substance: CALCIUM CITRATE\VITAMIN D
     Dosage: 3 TABS QD
     Dates: start: 1996
  4. FOSAMAX [Suspect]
     Active Substance: ALENDRONATE SODIUM
     Indication: OSTEOPOROSIS
     Dosage: 10 MG, UNK
     Route: 048
     Dates: start: 1995

REACTIONS (36)
  - Bursitis [Unknown]
  - Fibromyalgia [Unknown]
  - Peptic ulcer [Unknown]
  - Hot flush [Unknown]
  - Hyperhidrosis [Unknown]
  - Drug ineffective [Unknown]
  - Hyperlipidaemia [Unknown]
  - Femur fracture [Unknown]
  - Foot fracture [Unknown]
  - Joint dislocation [Unknown]
  - Osteopenia [Unknown]
  - Drug ineffective [Unknown]
  - Mammoplasty [Unknown]
  - Gastrooesophageal reflux disease [Unknown]
  - Intramedullary rod insertion [Unknown]
  - Vitamin D deficiency [Unknown]
  - Intramedullary rod insertion [Unknown]
  - Foot fracture [Unknown]
  - Pain [Unknown]
  - Inappropriate schedule of drug administration [Unknown]
  - Macular degeneration [Unknown]
  - Dysphagia [Unknown]
  - Carpal tunnel decompression [Unknown]
  - Bladder operation [Unknown]
  - Osteoarthritis [Unknown]
  - Intervertebral disc degeneration [Unknown]
  - Weight increased [Unknown]
  - Bone disorder [Unknown]
  - Osteoarthritis [Not Recovered/Not Resolved]
  - Anxiety [Unknown]
  - Tonsillectomy [Unknown]
  - Spinal osteoarthritis [Unknown]
  - Osteoarthritis [Unknown]
  - Hand deformity [Unknown]
  - Femur fracture [Not Recovered/Not Resolved]
  - Restless legs syndrome [Unknown]

NARRATIVE: CASE EVENT DATE: 2007
